FAERS Safety Report 6528671-4 (Version None)
Quarter: 2009Q4

REPORT INFORMATION
  Report Type: 
  Country: None (occurrence: None)
  Receive Date: 20091222
  Receipt Date: 20091208
  Transmission Date: 20100525
  Serious: Yes (Other)
  Sender: FDA-Public Use
  Company Number: A0834075A

PATIENT
  Age: 62 Year
  Sex: Male

DRUGS (1)
  1. SENSODYNE-F [Suspect]
     Indication: DENTAL CLEANING
     Dosage: DENTAL
     Route: 004

REACTIONS (4)
  - APPARENT DEATH [None]
  - ASPIRATION [None]
  - CYANOSIS [None]
  - OBSTRUCTIVE AIRWAYS DISORDER [None]
